FAERS Safety Report 25104012 (Version 1)
Quarter: 2025Q1

REPORT INFORMATION
  Report Type: Spontaneous
  Country: CI (occurrence: CI)
  Receive Date: 20250321
  Receipt Date: 20250321
  Transmission Date: 20250409
  Serious: Yes (Life-Threatening)
  Sender: GE HEALTHCARE
  Company Number: CI-GE HEALTHCARE-2025CSU003354

PATIENT
  Age: 75 Year
  Sex: Male

DRUGS (1)
  1. OMNIPAQUE [Suspect]
     Active Substance: IOHEXOL
     Indication: Chest scan
     Route: 042

REACTIONS (3)
  - Myalgia [Recovered/Resolved]
  - Vomiting [Recovered/Resolved]
  - Chills [Recovered/Resolved]
